FAERS Safety Report 24538192 (Version 2)
Quarter: 2024Q4

REPORT INFORMATION
  Report Type: Spontaneous
  Country: US (occurrence: US)
  Receive Date: 20241023
  Receipt Date: 20241024
  Transmission Date: 20250115
  Serious: No
  Sender: AMGEN
  Company Number: US-AMGEN-USASP2024207167

PATIENT
  Age: 82 Year
  Sex: Male

DRUGS (1)
  1. REPATHA [Suspect]
     Active Substance: EVOLOCUMAB
     Indication: Hyperlipidaemia
     Dosage: 140 MILLIGRAM, Q2WK, (STRENGTH:140 MG)
     Route: 058
     Dates: start: 20240822

REACTIONS (2)
  - Hypoacusis [Unknown]
  - Device difficult to use [Unknown]

NARRATIVE: CASE EVENT DATE: 20241017
